FAERS Safety Report 5820953-4 (Version None)
Quarter: 2008Q3

REPORT INFORMATION
  Report Type: 
  Country: None (occurrence: None)
  Receive Date: 20080721
  Receipt Date: 20080711
  Transmission Date: 20090109
  Serious: Yes (Hospitalization)
  Sender: FDA-Public Use
  Company Number: 2007BI026137

PATIENT
  Age: 47 Year
  Sex: Female

DRUGS (3)
  1. AVONEX [Suspect]
     Indication: MULTIPLE SCLEROSIS
     Dosage: 30 UG; QW; IM
     Route: 030
     Dates: start: 20051201
  2. AVONEX [Suspect]
  3. PREDNISONE (CON.) [Concomitant]

REACTIONS (3)
  - JOINT DISLOCATION [None]
  - OSTEONECROSIS [None]
  - POST PROCEDURAL COMPLICATION [None]
